FAERS Safety Report 7913338-8 (Version None)
Quarter: 2011Q4

REPORT INFORMATION
  Report Type: 
  Country: None (occurrence: None)
  Receive Date: 20111114
  Receipt Date: 20111104
  Transmission Date: 20120403
  Serious: Yes (Other)
  Sender: FDA-Public Use
  Company Number: US-ASTRAZENECA-2011SE61676

PATIENT
  Age: 52 Year
  Sex: Male

DRUGS (2)
  1. PRILOSEC [Suspect]
     Route: 048
  2. NEXIUM [Suspect]
     Route: 048

REACTIONS (6)
  - HIATUS HERNIA [None]
  - ADVERSE DRUG REACTION [None]
  - HEPATITIS C [None]
  - DRUG DOSE OMISSION [None]
  - DIARRHOEA [None]
  - MUSCLE SPASMS [None]
